FAERS Safety Report 25887921 (Version 1)
Quarter: 2025Q4

REPORT INFORMATION
  Report Type: Spontaneous
  Country: IN (occurrence: IN)
  Receive Date: 20251007
  Receipt Date: 20251007
  Transmission Date: 20260117
  Serious: Yes (Other)
  Sender: STRIDES
  Company Number: None

PATIENT
  Sex: Female

DRUGS (3)
  1. ALBENDAZOLE [Suspect]
     Active Substance: ALBENDAZOLE
     Indication: Filariasis
     Dosage: UNK
     Route: 065
  2. IVERMECTIN [Suspect]
     Active Substance: IVERMECTIN
     Indication: Filariasis
     Dosage: UNK
     Route: 065
  3. DIETHYLCARBAMAZINE [Suspect]
     Active Substance: DIETHYLCARBAMAZINE
     Indication: Filariasis
     Dosage: UNK
     Route: 065

REACTIONS (2)
  - Lymphangitis [Unknown]
  - Off label use [Unknown]
